FAERS Safety Report 12565236 (Version 4)
Quarter: 2016Q3

REPORT INFORMATION
  Report Type: Spontaneous
  Country: US (occurrence: US)
  Receive Date: 20160718
  Receipt Date: 20160830
  Transmission Date: 20161109
  Serious: Yes (Other)
  Sender: FDA-Public Use
  Company Number: US-PFIZER INC-2016340099

PATIENT
  Age: 87 Year
  Sex: Female
  Weight: 60 kg

DRUGS (5)
  1. ADVIL [Suspect]
     Active Substance: IBUPROFEN
     Indication: OSTEOPOROSIS
  2. LIDOCAINE. [Concomitant]
     Active Substance: LIDOCAINE
     Indication: BACK PAIN
     Dosage: 5 MG, UNK
  3. ADVIL [Suspect]
     Active Substance: IBUPROFEN
     Indication: BACK PAIN
  4. TYLENOL [Concomitant]
     Active Substance: ACETAMINOPHEN
     Indication: BACK PAIN
     Dosage: 2 DF, UNK (EVERY 2 TO 4 HOURS)
  5. ADVIL [Suspect]
     Active Substance: IBUPROFEN
     Indication: ARTHRITIS
     Dosage: 2 DF, UNK

REACTIONS (2)
  - Haemorrhage [Unknown]
  - Dyspepsia [Unknown]
